FAERS Safety Report 7222291-4 (Version None)
Quarter: 2011Q1

REPORT INFORMATION
  Report Type: 
  Country: None (occurrence: None)
  Receive Date: 20110112
  Receipt Date: 20110110
  Transmission Date: 20110831
  Serious: Yes (Death, Hospitalization)
  Sender: FDA-Public Use
  Company Number: US-BRISTOL-MYERS SQUIBB COMPANY-15478738

PATIENT
  Age: 43 Year
  Sex: Female

DRUGS (4)
  1. METOCLOPRAMIDE [Concomitant]
     Dates: start: 19910820, end: 19910906
  2. PARAPLATIN [Suspect]
     Indication: OVARIAN CANCER
     Route: 033
     Dates: start: 19910820, end: 19910821
  3. NEUPOGEN [Suspect]
     Indication: CHEMOTHERAPY
     Dosage: AMP 1DF=6.6 MCG/KG
     Route: 042
     Dates: start: 19910826, end: 19910906
  4. IFEX [Suspect]
     Indication: OVARIAN CANCER
     Route: 042
     Dates: start: 19910820, end: 19910821

REACTIONS (3)
  - RENAL FAILURE [None]
  - GRANULOCYTOPENIA [None]
  - NEOPLASM MALIGNANT [None]
